FAERS Safety Report 24565422 (Version 1)
Quarter: 2024Q4

REPORT INFORMATION
  Report Type: Spontaneous
  Country: NL (occurrence: NL)
  Receive Date: 20241030
  Receipt Date: 20241030
  Transmission Date: 20250115
  Serious: Yes (Hospitalization)
  Sender: TEVA
  Company Number: None

PATIENT
  Age: 79 Year
  Sex: Male
  Weight: 125 kg

DRUGS (2)
  1. PANTOPRAZOLE [Suspect]
     Active Substance: PANTOPRAZOLE
     Indication: Abdominal discomfort
     Dosage: 1 DD, PANTOPRAZOL MSR / BRAND NAME NOT SPECIFIED
     Route: 065
     Dates: start: 20091020, end: 20240923
  2. FUROSEMIDE [Suspect]
     Active Substance: FUROSEMIDE
     Indication: Cardiac failure
     Dosage: 1 DD, BRAND NAME NOT SPECIFIED
     Route: 065
     Dates: start: 20050802, end: 20240923

REACTIONS (2)
  - Hypokalaemia [Recovering/Resolving]
  - Hypomagnesaemia [Recovering/Resolving]
